FAERS Safety Report 5373684-1 (Version None)
Quarter: 2007Q2

REPORT INFORMATION
  Report Type: 
  Country: None (occurrence: None)
  Receive Date: 20070615
  Receipt Date: 20070205
  Transmission Date: 20071010
  Serious: Yes (Other)
  Sender: FDA-Public Use
  Company Number: 200616807US

PATIENT
  Age: 70 Year
  Sex: Male

DRUGS (13)
  1. LANTUS [Suspect]
     Indication: DIABETES MELLITUS NON-INSULIN-DEPENDENT
     Dosage: 60 U
     Dates: start: 20060810
  2. AVANDIA [Concomitant]
  3. TOPROL-XL [Concomitant]
  4. CLONIDINE [Concomitant]
  5. CAPTOPRIL [Concomitant]
  6. FUROSEMIDE [Concomitant]
  7. ATORAVASTATIN CALCIUM (LIPITOR) [Concomitant]
  8. CEPHALEXIN [Concomitant]
  9. ASCORBIC ACID, TOCOPHERYL ACETATE, RETINOL, ZINC, CALCIUM, VITAMIN NOS [Concomitant]
  10. CALCIUM CHLORIDE [Concomitant]
  11. FISH OIL [Concomitant]
  12. DIPHENHYDRAMINE HYDROCHLORIDE (BENADRYL/OLD FOMR/) [Concomitant]
  13. PARACETAMOL, DIPHENHYDRAMINE HYDROCHLORIDE (TYLENOL PM INSULIN ASPART [Concomitant]

REACTIONS (1)
  - HYPERGLYCAEMIA [None]
